FAERS Safety Report 25287614 (Version 3)
Quarter: 2025Q2

REPORT INFORMATION
  Report Type: Spontaneous
  Country: FR (occurrence: FR)
  Receive Date: 20250509
  Receipt Date: 20250603
  Transmission Date: 20250717
  Serious: Yes (Other)
  Sender: MERCK SHARP & DOHME LLC
  Company Number: FR-009507513-2281984

PATIENT
  Sex: Female
  Weight: 67 kg

DRUGS (4)
  1. PEMBROLIZUMAB [Suspect]
     Active Substance: PEMBROLIZUMAB
     Indication: Endometrial cancer
     Route: 065
     Dates: start: 20220116
  2. PEMBROLIZUMAB [Suspect]
     Active Substance: PEMBROLIZUMAB
     Indication: Endometrial cancer
     Dates: start: 202306
  3. LENVATINIB [Concomitant]
     Active Substance: LENVATINIB
     Route: 048
     Dates: start: 202306
  4. LENVATINIB [Concomitant]
     Active Substance: LENVATINIB
     Route: 048
     Dates: start: 202306

REACTIONS (8)
  - Rheumatoid arthritis [Unknown]
  - Periostitis [Unknown]
  - Bone disorder [Unknown]
  - Adrenal insufficiency [Unknown]
  - Myositis [Unknown]
  - Pruritus [Unknown]
  - Polyarthritis [Not Recovered/Not Resolved]
  - Malignant neoplasm progression [Unknown]

NARRATIVE: CASE EVENT DATE: 20230601
